FAERS Safety Report 25437362 (Version 3)
Quarter: 2025Q3

REPORT INFORMATION
  Report Type: Spontaneous
  Country: US (occurrence: US)
  Receive Date: 20250616
  Receipt Date: 20250804
  Transmission Date: 20251020
  Serious: No
  Sender: BRISTOL-MYERS SQUIBB COMPANY
  Company Number: US-BRISTOL-MYERS SQUIBB COMPANY-2025-082592

PATIENT
  Age: 65 Year
  Sex: Male

DRUGS (2)
  1. REVLIMID [Suspect]
     Active Substance: LENALIDOMIDE
     Indication: Plasma cell myeloma
     Dosage: QD FOR 21 DAYS ON AND 7 DAYS OFF
     Route: 048
     Dates: start: 2024
  2. REVLIMID [Suspect]
     Active Substance: LENALIDOMIDE
     Route: 048
     Dates: start: 2024

REACTIONS (3)
  - Rash [Not Recovered/Not Resolved]
  - Petechiae [Recovered/Resolved]
  - Musculoskeletal discomfort [Recovering/Resolving]
